FAERS Safety Report 23571438 (Version 1)
Quarter: 2024Q1

REPORT INFORMATION
  Report Type: Report from Study
  Country: DE (occurrence: DE)
  Receive Date: 20240227
  Receipt Date: 20240227
  Transmission Date: 20240409
  Serious: Yes (Hospitalization)
  Sender: FDA-Public Use
  Company Number: DE-ALNYLAM PHARMACEUTICALS, INC.-ALN-2024-001016

PATIENT

DRUGS (1)
  1. AMVUTTRA [Suspect]
     Active Substance: VUTRISIRAN
     Indication: Product used for unknown indication
     Dosage: UNK, Q3M (25)
     Route: 065
     Dates: start: 20240116, end: 20240116

REACTIONS (6)
  - Pain in extremity [Unknown]
  - Headache [Unknown]
  - Asthenia [Unknown]
  - Speech disorder [Unknown]
  - Hypoaesthesia [Unknown]
  - Loss of therapeutic response [Unknown]
